FAERS Safety Report 17537529 (Version 1)
Quarter: 2020Q1

REPORT INFORMATION
  Report Type: Report from Study
  Country: US (occurrence: US)
  Receive Date: 20200313
  Receipt Date: 20200313
  Transmission Date: 20200409
  Serious: Yes (Hospitalization, Other)
  Sender: FDA-Public Use
  Company Number: US-BAYER-2020-042947

PATIENT
  Age: 63 Year
  Sex: Male

DRUGS (1)
  1. ADEMPAS [Suspect]
     Active Substance: RIOCIGUAT
     Indication: PULMONARY HYPERTENSION
     Dosage: 2.5 MG, TID
     Route: 048
     Dates: start: 20190315

REACTIONS (7)
  - Constipation [Recovering/Resolving]
  - Faecaloma [Recovering/Resolving]
  - Hospice care [Unknown]
  - Hospitalisation [None]
  - Anaemia [Not Recovered/Not Resolved]
  - Fluid retention [Recovering/Resolving]
  - Hospitalisation [None]

NARRATIVE: CASE EVENT DATE: 20200220
